FAERS Safety Report 18084289 (Version 1)
Quarter: 2020Q3

REPORT INFORMATION
  Report Type: Other
  Country: FR (occurrence: FR)
  Receive Date: 20200729
  Receipt Date: 20200729
  Transmission Date: 20201103
  Serious: Yes (Death, Other)
  Sender: FDA-Public Use
  Company Number: FR-ROCHE-2649061

PATIENT
  Age: 51 Year
  Sex: Male

DRUGS (2)
  1. ACTILYSE [Suspect]
     Active Substance: ALTEPLASE
     Indication: CEREBRAL INFARCTION
     Dosage: ALTEPLASE WAS INJECTED 128 MIN AFTER SYMPTOM ONSET
     Route: 042
  2. REMDESIVIR. [Concomitant]
     Active Substance: REMDESIVIR
     Indication: PRODUCT USED FOR UNKNOWN INDICATION
     Dosage: (LOADING DOSE: 200 MG IV, 100 MG IV PER DAY)
     Route: 042

REACTIONS (3)
  - Blindness cortical [Unknown]
  - Respiratory failure [Fatal]
  - Haemorrhagic transformation stroke [Unknown]
